FAERS Safety Report 13397220 (Version 1)
Quarter: 2017Q2

REPORT INFORMATION
  Report Type: Spontaneous
  Country: US (occurrence: US)
  Receive Date: 20170403
  Receipt Date: 20170403
  Transmission Date: 20170830
  Serious: No
  Sender: FDA-Public Use
  Company Number: US-009507513-1703USA014500

PATIENT
  Age: 66 Year
  Sex: Male

DRUGS (2)
  1. BELSOMRA [Suspect]
     Active Substance: SUVOREXANT
     Indication: INSOMNIA
     Dosage: FIVE MILLIGRAMS ONCE PER NIGHT
     Route: 048
     Dates: start: 20170328, end: 20170328
  2. BELSOMRA [Suspect]
     Active Substance: SUVOREXANT
     Dosage: TWO 5 MILLIGRAMS, ONCE PER NIGHT
     Route: 048
     Dates: start: 20170329

REACTIONS (3)
  - Drug ineffective [Unknown]
  - Drug effect incomplete [Unknown]
  - Underdose [Unknown]

NARRATIVE: CASE EVENT DATE: 20170328
